FAERS Safety Report 19089502 (Version 1)
Quarter: 2021Q2

REPORT INFORMATION
  Report Type: Spontaneous
  Country: US (occurrence: US)
  Receive Date: 20210403
  Receipt Date: 20210403
  Transmission Date: 20210717
  Serious: Yes (Other)
  Sender: FDA-Public Use
  Company Number: US-CIPLA LTD.-2021US02561

PATIENT

DRUGS (8)
  1. CARBOPLATIN. [Suspect]
     Active Substance: CARBOPLATIN
     Dosage: 113.5 MG, ON DAY?1 OF CYCLE? 3
     Route: 065
  2. VINCRISTINE [Suspect]
     Active Substance: VINCRISTINE
     Dosage: 0.2 MG, ON DAY?1 OF CYCLE?3 AND CYCLE? 4
     Route: 042
  3. VINCRISTINE [Suspect]
     Active Substance: VINCRISTINE
     Indication: CONGENITAL RETINOBLASTOMA
     Dosage: 0.1 MG, DURING CYCLE?1 AND 2
     Route: 042
  4. ETOPOSIDE. [Suspect]
     Active Substance: ETOPOSIDE
     Indication: CONGENITAL RETINOBLASTOMA
     Dosage: 30.5 MG, ON DAY?1 AND DAY?2 OF CYCLE 3
     Route: 042
  5. CARBOPLATIN. [Suspect]
     Active Substance: CARBOPLATIN
     Dosage: 98.6 MG, CYCLE 2
     Route: 042
  6. CARBOPLATIN. [Suspect]
     Active Substance: CARBOPLATIN
     Indication: CONGENITAL RETINOBLASTOMA
     Dosage: 96.7 MG, CYCLE 1
     Route: 042
  7. CARBOPLATIN. [Suspect]
     Active Substance: CARBOPLATIN
     Dosage: 124.6 MG, ON DAY?1 OF CYCLE?4
     Route: 042
  8. ETOPOSIDE. [Suspect]
     Active Substance: ETOPOSIDE
     Dosage: 33.5 MG, ON DAY?1 AND DAY?2 OF CYCLE 4
     Route: 042

REACTIONS (1)
  - Treatment failure [Unknown]
